FAERS Safety Report 4289634-5 (Version None)
Quarter: 2004Q1

REPORT INFORMATION
  Report Type: 
  Country: None (occurrence: None)
  Receive Date: 20040126
  Receipt Date: 20030922
  Transmission Date: 20041129
  Serious: No
  Sender: FDA-Public Use
  Company Number: USA031048730

PATIENT
  Age: 73 Year
  Sex: Female

DRUGS (7)
  1. FORTEO [Suspect]
  2. THYROID TAB [Concomitant]
  3. LORCET-HD [Concomitant]
  4. OXYCONTIN [Concomitant]
  5. REGLAN [Concomitant]
  6. RESTORIL [Concomitant]
  7. NEURONTIN [Concomitant]

REACTIONS (1)
  - BLOOD ALKALINE PHOSPHATASE INCREASED [None]
